FAERS Safety Report 7259712-7 (Version None)
Quarter: 2011Q1

REPORT INFORMATION
  Report Type: 
  Country: None (occurrence: None)
  Receive Date: 20110130
  Receipt Date: 20100913
  Transmission Date: 20110831
  Serious: Yes (Hospitalization)
  Sender: FDA-Public Use
  Company Number: US-ABBOTT-10P-163-0656731-00

PATIENT
  Sex: Male
  Weight: 81.72 kg

DRUGS (4)
  1. METHOTREXATE [Concomitant]
     Indication: PSORIATIC ARTHROPATHY
  2. HUMIRA [Suspect]
     Indication: PSORIATIC ARTHROPATHY
     Dates: start: 20100508
  3. SIMBASTATIN [Concomitant]
     Indication: BLOOD CHOLESTEROL INCREASED
  4. FOLIC ACID [Concomitant]
     Indication: PRODUCT USED FOR UNKNOWN INDICATION

REACTIONS (7)
  - CHILLS [None]
  - VOMITING [None]
  - ABDOMINAL PAIN UPPER [None]
  - ABDOMINAL TENDERNESS [None]
  - ABDOMINAL PAIN [None]
  - PYREXIA [None]
  - APPENDICITIS [None]
